FAERS Safety Report 15375119 (Version 1)
Quarter: 2018Q3

REPORT INFORMATION
  Report Type: Spontaneous
  Country: JP (occurrence: JP)
  Receive Date: 20180912
  Receipt Date: 20180912
  Transmission Date: 20181010
  Serious: Yes (Other)
  Sender: FDA-Public Use
  Company Number: JP-SA-2018SA153966

PATIENT
  Age: 32 Year
  Sex: Female

DRUGS (12)
  1. ELPLAT [Suspect]
     Active Substance: OXALIPLATIN
     Indication: TESTICULAR CHORIOCARCINOMA
     Dosage: 253.5 MG, QD
     Route: 041
     Dates: start: 20151209, end: 20151209
  2. DEXART [Concomitant]
     Active Substance: DEXAMETHASONE SODIUM PHOSPHATE
     Dosage: UNK
     Dates: start: 20151209, end: 20160106
  3. WARFARIN K [Concomitant]
     Active Substance: WARFARIN POTASSIUM
     Dosage: UNK
     Dates: start: 20151209, end: 20180108
  4. XARELTO [Concomitant]
     Active Substance: RIVAROXABAN
     Dosage: UNK
     Dates: start: 20160208
  5. ELPLAT [Suspect]
     Active Substance: OXALIPLATIN
     Dosage: 253.5 MG, QD
     Route: 041
     Dates: start: 20151230, end: 20151230
  6. GEMCITABINE HYDROCHLORIDE. [Suspect]
     Active Substance: GEMCITABINE HYDROCHLORIDE
     Dosage: 1950 MG, QD
     Route: 041
     Dates: start: 20151216, end: 20151216
  7. GEMCITABINE HYDROCHLORIDE. [Suspect]
     Active Substance: GEMCITABINE HYDROCHLORIDE
     Dosage: 1950 MG, QD
     Route: 041
     Dates: start: 20151230, end: 20151230
  8. GRANISETRON [Concomitant]
     Active Substance: GRANISETRON
     Dosage: UNK
     Dates: start: 20151209, end: 20151230
  9. METHYCOBAL [Concomitant]
     Active Substance: METHYLCOBALAMIN
     Dosage: UNK
  10. GEMCITABINE HYDROCHLORIDE. [Suspect]
     Active Substance: GEMCITABINE HYDROCHLORIDE
     Dosage: 1950 MG, QD
     Route: 041
     Dates: start: 20151209, end: 20151209
  11. GEMCITABINE HYDROCHLORIDE. [Suspect]
     Active Substance: GEMCITABINE HYDROCHLORIDE
     Dosage: 1950 MG, QD
     Route: 041
     Dates: start: 20160106, end: 20160106
  12. GLYCEREB [Concomitant]
     Active Substance: FRUCTOSE\GLYCERIN
     Dosage: UNK
     Dates: start: 20151209

REACTIONS (7)
  - Hepatitis fulminant [Recovered/Resolved]
  - White blood cell count decreased [Unknown]
  - Platelet count decreased [Recovered/Resolved]
  - Neuropathy peripheral [Unknown]
  - Renal disorder [Recovered/Resolved]
  - Neutrophil count decreased [Recovered/Resolved]
  - Haemoglobin decreased [Unknown]

NARRATIVE: CASE EVENT DATE: 20151212
